FAERS Safety Report 7930762-8 (Version None)
Quarter: 2011Q4

REPORT INFORMATION
  Report Type: 
  Country: None (occurrence: None)
  Receive Date: 20111121
  Receipt Date: 20111114
  Transmission Date: 20120403
  Serious: Yes (Other)
  Sender: FDA-Public Use
  Company Number: US-GLAXOSMITHKLINE-A0944364A

PATIENT
  Sex: Male

DRUGS (2)
  1. HERBAL MEDICATION [Suspect]
     Indication: PRODUCT USED FOR UNKNOWN INDICATION
     Route: 065
  2. VOTRIENT [Suspect]
     Indication: RENAL CANCER
     Dosage: 800MG PER DAY
     Route: 065

REACTIONS (4)
  - DYSPEPSIA [None]
  - PLEURAL EFFUSION [None]
  - NAUSEA [None]
  - DRUG INTERACTION [None]
